FAERS Safety Report 9581398 (Version 1)
Quarter: 2013Q4

REPORT INFORMATION
  Report Type: Spontaneous
  Country: FR (occurrence: FR)
  Receive Date: 20131002
  Receipt Date: 20131002
  Transmission Date: 20140711
  Serious: Yes (Hospitalization)
  Sender: FDA-Public Use
  Company Number: FR-UCBSA-098878

PATIENT
  Age: 74 Year
  Sex: Female

DRUGS (4)
  1. XYZALL [Suspect]
     Dosage: SCORED FILM COATED TABLETS
     Route: 048
     Dates: start: 20130828, end: 20130828
  2. POLARAMINE [Suspect]
     Dosage: 5 MG/1ML IN ONE CYCLE
     Route: 042
     Dates: start: 20130226, end: 20130821
  3. MYLAN [Suspect]
     Dosage: 40 MG IN ONE CYCLE
     Route: 042
     Dates: start: 20130226, end: 20130828
  4. AZANTAC [Suspect]
     Dosage: 50 MG  (50 MG IN ONE CYCLE)
     Route: 042
     Dates: start: 20130226, end: 20130821

REACTIONS (4)
  - Malaise [Recovered/Resolved]
  - Hypotension [Recovered/Resolved]
  - Pruritus [Recovered/Resolved]
  - Erythema [Recovered/Resolved]
